FAERS Safety Report 18229087 (Version 1)
Quarter: 2020Q3

REPORT INFORMATION
  Report Type: Report from Study
  Country: BR (occurrence: BR)
  Receive Date: 20200903
  Receipt Date: 20200903
  Transmission Date: 20201103
  Serious: Yes (Other)
  Sender: FDA-Public Use
  Company Number: NVSC2020BR059045

PATIENT
  Sex: Male

DRUGS (1)
  1. COSENTYX [Suspect]
     Active Substance: SECUKINUMAB
     Indication: ANKYLOSING SPONDYLITIS
     Dosage: 150 MG, UNKNOWN
     Route: 065
     Dates: start: 20191206

REACTIONS (4)
  - Vision blurred [Not Recovered/Not Resolved]
  - Pain [Recovering/Resolving]
  - Inflammation [Not Recovered/Not Resolved]
  - Uveitis [Recovering/Resolving]
